FAERS Safety Report 10197040 (Version 1)
Quarter: 2014Q2

REPORT INFORMATION
  Report Type: Spontaneous
  Country: FR (occurrence: FR)
  Receive Date: 20140527
  Receipt Date: 20140527
  Transmission Date: 20141212
  Serious: Yes (Hospitalization, Other)
  Sender: FDA-Public Use
  Company Number: FR-TEVA-482095ISR

PATIENT
  Age: 85 Year
  Sex: Male

DRUGS (5)
  1. AMIODARONE TEVA [Suspect]
     Dosage: 200 MILLIGRAM DAILY;
     Route: 048
     Dates: end: 20120115
  2. COUMADINE [Concomitant]
     Dosage: USUAL TREATMENT
  3. COVERSYL [Concomitant]
     Dosage: USUAL TREATMENT
  4. ATORVASTATINE [Concomitant]
     Dosage: USUAL TREATMENT
  5. KEPPRA [Concomitant]
     Dosage: USUAL TREATMENT

REACTIONS (4)
  - Pigmentation disorder [Unknown]
  - Fracture [Unknown]
  - Pelvic fracture [None]
  - Septic shock [None]
